FAERS Safety Report 18208454 (Version 2)
Quarter: 2020Q3

REPORT INFORMATION
  Report Type: Spontaneous
  Country: US (occurrence: US)
  Receive Date: 20200828
  Receipt Date: 20200923
  Transmission Date: 20201103
  Serious: Yes (Hospitalization)
  Sender: FDA-Public Use
  Company Number: US-ASTRAZENECA-2020SF07415

PATIENT
  Sex: Male
  Weight: 68 kg

DRUGS (5)
  1. BUDESONIDE+FORMOTEROL [Suspect]
     Active Substance: BUDESONIDE\FORMOTEROL
     Dosage: 160?4.5 MCG 3?4 PUFFS OF THE GENERIC WHEN 1 PUFF OF THE BRAND
     Route: 065
     Dates: start: 20200720
  2. ALBUTEROL. [Concomitant]
     Active Substance: ALBUTEROL
     Indication: INHALATION THERAPY
     Route: 055
  3. BUDESONIDE+FORMOTEROL [Suspect]
     Active Substance: BUDESONIDE\FORMOTEROL
     Dosage: 1 PUFF TWICE DAILY
     Route: 065
  4. SYMBICORT [Suspect]
     Active Substance: BUDESONIDE\FORMOTEROL FUMARATE DIHYDRATE
     Indication: CHRONIC OBSTRUCTIVE PULMONARY DISEASE
     Dosage: 160?4.5 MCG 1 PUFF TWICE DAILY
     Route: 055
  5. SYMBICORT [Suspect]
     Active Substance: BUDESONIDE\FORMOTEROL FUMARATE DIHYDRATE
     Indication: ASTHMA
     Dosage: 160?4.5 MCG 1 PUFF TWICE DAILY
     Route: 055

REACTIONS (7)
  - Asthma [Unknown]
  - Device leakage [Unknown]
  - Wheezing [Unknown]
  - Product substitution issue [Unknown]
  - Dyspnoea [Recovered/Resolved]
  - Product use issue [Unknown]
  - Device delivery system issue [Unknown]
